FAERS Safety Report 16397791 (Version 1)
Quarter: 2019Q2

REPORT INFORMATION
  Report Type: Spontaneous
  Country: US (occurrence: US)
  Receive Date: 20190606
  Receipt Date: 20190606
  Transmission Date: 20190711
  Serious: Yes (Other)
  Sender: FDA-Public Use
  Company Number: US-ACCORD-131314

PATIENT
  Age: 60 Year
  Sex: Male

DRUGS (4)
  1. RITUXAN [Concomitant]
     Active Substance: RITUXIMAB
     Indication: DIFFUSE LARGE B-CELL LYMPHOMA STAGE III
     Dosage: CYCLE 3 DAY 6
  2. CYTARABINE/CYTARABINE HYDROCHLORIDE/CYTARABINE OCFOSFATE [Concomitant]
     Indication: DIFFUSE LARGE B-CELL LYMPHOMA STAGE III
     Dosage: CYCLE 3 DAY 6
  3. METHOTREXATE. [Suspect]
     Active Substance: METHOTREXATE
     Indication: DIFFUSE LARGE B-CELL LYMPHOMA STAGE III
     Dosage: CYCLE 3 DAY 6, OVER 15 MINUTES
  4. METHOTREXATE. [Suspect]
     Active Substance: METHOTREXATE
     Indication: DIFFUSE LARGE B-CELL LYMPHOMA STAGE III
     Dosage: CYCLE 3 DAY 6, OVER 3 HOURS ,900 MG OVER 15 MINUTES

REACTIONS (2)
  - Drug level increased [Unknown]
  - Blood creatinine increased [Recovering/Resolving]
